FAERS Safety Report 16487586 (Version 1)
Quarter: 2019Q2

REPORT INFORMATION
  Report Type: Spontaneous
  Country: US (occurrence: US)
  Receive Date: 20190627
  Receipt Date: 20190627
  Transmission Date: 20190711
  Serious: No
  Sender: FDA-Public Use
  Company Number: US-AMNEAL PHARMACEUTICALS-2018AMN00705

PATIENT
  Age: 56 Year
  Sex: Female
  Weight: 65.76 kg

DRUGS (3)
  1. BABY ASPIRIN [Concomitant]
     Active Substance: ASPIRIN
     Dosage: UNK
     Route: 065
  2. ESTRADIOL. [Suspect]
     Active Substance: ESTRADIOL
     Indication: VAGINAL WALL CONGESTION
  3. ESTRADIOL. [Suspect]
     Active Substance: ESTRADIOL
     Indication: MENOPAUSAL SYMPTOMS
     Dosage: 1 TABLETS, 2X/WEEK
     Route: 067
     Dates: start: 20181007, end: 20181007

REACTIONS (5)
  - Vulvovaginal pain [Recovered/Resolved]
  - Urinary incontinence [Recovered/Resolved]
  - Injury associated with device [Recovering/Resolving]
  - Complication of device insertion [Recovering/Resolving]
  - Dysuria [Recovering/Resolving]

NARRATIVE: CASE EVENT DATE: 20181007
